FAERS Safety Report 5202827-5 (Version None)
Quarter: 2006Q4

REPORT INFORMATION
  Report Type: 
  Country: None (occurrence: None)
  Receive Date: 20061018
  Receipt Date: 20060531
  Transmission Date: 20070319
  Serious: Yes (Other)
  Sender: FDA-Public Use
  Company Number: PHEH2006US05556

PATIENT
  Age: 60 Year
  Sex: Female

DRUGS (7)
  1. ZOMETA [Suspect]
     Indication: HYPERCALCAEMIA
     Dosage: 4 MG, ONCE/SINGLE/INFUSION
     Dates: start: 20060413
  2. LASIX [Concomitant]
  3. DILTIAZEM [Concomitant]
  4. VALPROIC ACID [Concomitant]
  5. ZOLOFT [Concomitant]
  6. VITAMIN D [Concomitant]
  7. CALCIUM (CALCIUM) [Concomitant]

REACTIONS (3)
  - BLOOD MAGNESIUM DECREASED [None]
  - BLOOD PHOSPHORUS DECREASED [None]
  - HYPOCALCAEMIA [None]
